FAERS Safety Report 12330877 (Version 3)
Quarter: 2016Q3

REPORT INFORMATION
  Report Type: Report from Study
  Country: US (occurrence: US)
  Receive Date: 20160504
  Receipt Date: 20160930
  Transmission Date: 20161109
  Serious: Yes (Hospitalization, Other)
  Sender: FDA-Public Use
  Company Number: PHHO2016US006261

PATIENT
  Age: 60 Year
  Sex: Male
  Weight: 92.8 kg

DRUGS (11)
  1. MORPHINE SULFATE. [Concomitant]
     Active Substance: MORPHINE SULFATE
     Indication: PAIN
     Dosage: 15 MG, BID
     Route: 048
     Dates: start: 20160405
  2. HYDROCODONE [Concomitant]
     Active Substance: HYDROCODONE
     Indication: PRODUCT USED FOR UNKNOWN INDICATION
     Dosage: 5.325 MG
     Route: 065
     Dates: start: 20160323
  3. TESSALON [Concomitant]
     Active Substance: BENZONATATE
     Indication: PRODUCT USED FOR UNKNOWN INDICATION
     Dosage: 2 EVERY 4 HRS
     Route: 065
     Dates: start: 20160425
  4. OXY.IR [Concomitant]
     Indication: PRODUCT USED FOR UNKNOWN INDICATION
     Dosage: 5-10 MG-5MG GIVEN BID
     Route: 065
     Dates: start: 20160420
  5. PROCHLORAZINE [Concomitant]
     Indication: NAUSEA
     Dosage: 11 MG, QID
     Route: 048
     Dates: start: 20160323
  6. LOVENOX [Concomitant]
     Active Substance: ENOXAPARIN SODIUM
     Indication: PRODUCT USED FOR UNKNOWN INDICATION
     Dosage: 40 MG, QD
     Route: 065
     Dates: start: 20160426
  7. OMEPRAZOLE. [Concomitant]
     Active Substance: OMEPRAZOLE
     Indication: DYSPHAGIA
     Dosage: 10 MG, QD
     Route: 048
     Dates: start: 20160323, end: 20160425
  8. LORAZEPAM. [Concomitant]
     Active Substance: LORAZEPAM
     Indication: INSOMNIA
     Dosage: 1 MG, BEDTIME
     Route: 048
     Dates: start: 20160323
  9. ZYKADIA [Suspect]
     Active Substance: CERITINIB
     Indication: NEOPLASM
     Dosage: 750 MG, QD
     Route: 048
     Dates: start: 20160324, end: 20160425
  10. DOCUSATE SODIUM. [Concomitant]
     Active Substance: DOCUSATE SODIUM
     Indication: CONSTIPATION
     Dosage: 100 MG, BEDTIME
     Route: 048
     Dates: start: 20160420
  11. LOPERAMIDE [Concomitant]
     Active Substance: LOPERAMIDE
     Indication: DIARRHOEA
     Dosage: 2 MG
     Route: 048
     Dates: start: 20160328, end: 20160425

REACTIONS (4)
  - Hyperbilirubinaemia [Not Recovered/Not Resolved]
  - Gamma-glutamyltransferase increased [Unknown]
  - Alanine aminotransferase increased [Recovered/Resolved]
  - Aspartate aminotransferase increased [Recovered/Resolved]

NARRATIVE: CASE EVENT DATE: 20160419
